FAERS Safety Report 19998286 (Version 4)
Quarter: 2022Q1

REPORT INFORMATION
  Report Type: Report from Study
  Country: JP (occurrence: JP)
  Receive Date: 20211026
  Receipt Date: 20220121
  Transmission Date: 20220423
  Serious: Yes (Other)
  Sender: FDA-Public Use
  Company Number: JP-ONO-2021JP026237

PATIENT
  Age: 62 Year
  Sex: Female
  Weight: 47.8 kg

DRUGS (3)
  1. NIVOLUMAB [Suspect]
     Active Substance: NIVOLUMAB
     Indication: Uterine cancer
     Dosage: 240 MILLIGRAM
     Route: 041
     Dates: start: 20201216
  2. LANSOPRAZOLE [Concomitant]
     Active Substance: LANSOPRAZOLE
     Indication: Gastritis prophylaxis
     Dosage: 30 MILLIGRAM, QD
     Route: 048
     Dates: start: 20210607
  3. URSODIOL [Concomitant]
     Active Substance: URSODIOL
     Indication: Supplementation therapy
     Dosage: 3 TABLETS IN 3 DIVIDED DOES
     Route: 065

REACTIONS (1)
  - Invasive ductal breast carcinoma [Not Recovered/Not Resolved]

NARRATIVE: CASE EVENT DATE: 20211015
